FAERS Safety Report 6010950-0 (Version None)
Quarter: 2008Q4

REPORT INFORMATION
  Report Type: 
  Country: None (occurrence: None)
  Receive Date: 20081218
  Receipt Date: 20081216
  Transmission Date: 20090506
  Serious: Yes (Other)
  Sender: FDA-Public Use
  Company Number: A0760458A

PATIENT
  Age: 78 Year
  Sex: Male

DRUGS (4)
  1. ADVAIR DISKUS 500/50 [Suspect]
     Indication: BRONCHIAL DISORDER
     Route: 055
     Dates: start: 20081001
  2. ATENOLOL [Concomitant]
  3. PLAVIX [Concomitant]
  4. TRICOR [Concomitant]

REACTIONS (2)
  - VISION BLURRED [None]
  - VISUAL ACUITY REDUCED [None]
